FAERS Safety Report 9372520 (Version 1)
Quarter: 2013Q2

REPORT INFORMATION
  Report Type: Report from Study
  Country: US (occurrence: US)
  Receive Date: 20130627
  Receipt Date: 20130627
  Transmission Date: 20140414
  Serious: Yes (Other)
  Sender: FDA-Public Use
  Company Number: US-MYLANLABS-2013S1000303

PATIENT
  Age: 55 Year
  Sex: Male
  Weight: 70.76 kg

DRUGS (6)
  1. CLOZAPINE TABLETS [Suspect]
     Indication: SCHIZOPHRENIA
     Route: 048
     Dates: start: 2007, end: 20121228
  2. CLOZAPINE TABLETS [Suspect]
     Indication: SCHIZOPHRENIA
     Route: 048
     Dates: start: 20130103
  3. AZITHROMYCIN [Suspect]
     Indication: VIRAL INFECTION
     Dates: start: 20121212, end: 20121216
  4. LEVOTHYROXINE [Concomitant]
  5. LUNESTA [Concomitant]
  6. ZYPREXA [Concomitant]

REACTIONS (5)
  - Granulocytopenia [Recovered/Resolved]
  - White blood cell count decreased [Recovered/Resolved]
  - Red blood cell count decreased [Recovered/Resolved]
  - Haemoglobin decreased [Recovered/Resolved]
  - Haematocrit decreased [Recovered/Resolved]
